FAERS Safety Report 22161535 (Version 1)
Quarter: 2023Q1

REPORT INFORMATION
  Report Type: Spontaneous
  Country: CH (occurrence: CH)
  Receive Date: 20230331
  Receipt Date: 20230331
  Transmission Date: 20230417
  Serious: Yes (Hospitalization, Other)
  Sender: FDA-Public Use
  Company Number: None

PATIENT
  Age: 16 Year
  Sex: Male

DRUGS (15)
  1. LORAZEPAM [Suspect]
     Active Substance: LORAZEPAM
     Dosage: 0.5MG IN THE MORNING AND 1MG IN THE EVENING
     Route: 048
     Dates: start: 20230303, end: 20230310
  2. LORAZEPAM [Suspect]
     Active Substance: LORAZEPAM
     Dosage: 0.5 MG, 2X/DAY
     Route: 048
     Dates: start: 20230310
  3. LORAZEPAM [Suspect]
     Active Substance: LORAZEPAM
     Dosage: UNK UNK, AS NEEDED
     Route: 048
     Dates: start: 20230310
  4. RUFINAMIDE [Suspect]
     Active Substance: RUFINAMIDE
     Dosage: 2X/DAY (18.5ML MORNING AND 19 ML EVENING)
     Route: 048
     Dates: end: 20230303
  5. RUFINAMIDE [Suspect]
     Active Substance: RUFINAMIDE
     Dosage: 18.5 ML, 2X/DAY
     Route: 048
     Dates: start: 20230304
  6. TOPAMAX [Suspect]
     Active Substance: TOPIRAMATE
     Dosage: 57.5 MG, 2X/DAY
     Route: 048
  7. KEPPRA [Suspect]
     Active Substance: LEVETIRACETAM
     Dosage: 2X/DAY (12 ML MORNING AND 12.5 ML EVENING)
     Route: 048
     Dates: end: 20230303
  8. KEPPRA [Suspect]
     Active Substance: LEVETIRACETAM
     Dosage: 12.5 ML, 2X/DAY
     Route: 048
     Dates: start: 20230304
  9. CANNABIDIOL [Suspect]
     Active Substance: CANNABIDIOL
     Dosage: 25 MG, 2X/DAY (0.5ML )
     Route: 048
     Dates: end: 20230308
  10. CANNABIDIOL [Suspect]
     Active Substance: CANNABIDIOL
     Dosage: 50 MG, 2X/DAY (1 ML)
     Route: 048
     Dates: start: 20230309
  11. CLOBAZAM [Suspect]
     Active Substance: CLOBAZAM
     Dosage: 20 MG, 2X/DAY
     Route: 048
  12. ETHOSUXIMIDE [Suspect]
     Active Substance: ETHOSUXIMIDE
     Dosage: 8 ML, 2X/DAY
     Route: 048
  13. NYSTATIN [Concomitant]
     Active Substance: NYSTATIN
     Indication: Oral candidiasis
     Dosage: UNK
     Route: 048
  14. DAFALGAN [Concomitant]
     Active Substance: ACETAMINOPHEN
     Dosage: UNK
     Route: 048
  15. NEXIUM I.V. [Concomitant]
     Active Substance: ESOMEPRAZOLE SODIUM
     Dosage: UNK
     Route: 048

REACTIONS (4)
  - Somnolence [Not Recovered/Not Resolved]
  - Epilepsy [Unknown]
  - Hypoglycaemia [Unknown]
  - Portal shunt [Unknown]

NARRATIVE: CASE EVENT DATE: 20220101
